FAERS Safety Report 8506658-X (Version None)
Quarter: 2012Q3

REPORT INFORMATION
  Report Type: 
  Country: None (occurrence: None)
  Receive Date: 20120712
  Receipt Date: 20120710
  Transmission Date: 20120928
  Serious: No
  Sender: FDA-Public Use
  Company Number: US-PFIZER INC-2012165671

PATIENT
  Sex: Male
  Weight: 79.365 kg

DRUGS (2)
  1. ALPRAZOLAM [Suspect]
     Indication: ANXIETY
  2. ALPRAZOLAM [Suspect]
     Indication: SLEEP DISORDER
     Dosage: 0.5MG, DAILY
     Route: 048
     Dates: start: 20120101

REACTIONS (3)
  - PLATELET COUNT DECREASED [None]
  - VIRAL INFECTION [None]
  - ASPARTATE AMINOTRANSFERASE INCREASED [None]
